FAERS Safety Report 12550063 (Version 1)
Quarter: 2016Q3

REPORT INFORMATION
  Report Type: Spontaneous
  Country: DE (occurrence: DE)
  Receive Date: 20160712
  Receipt Date: 20160712
  Transmission Date: 20161109
  Serious: Yes (Hospitalization)
  Sender: FDA-Public Use
  Company Number: DE-GILEAD-2016-0220000

PATIENT
  Age: 73 Year
  Sex: Female
  Weight: 54 kg

DRUGS (2)
  1. ZYDELIG [Suspect]
     Active Substance: IDELALISIB
     Indication: B-CELL LYMPHOMA
     Dosage: 150 MG, BID
     Route: 048
     Dates: start: 20160203, end: 20160610
  2. SALOFALK                           /00747601/ [Suspect]
     Active Substance: MESALAMINE
     Indication: DIARRHOEA
     Dosage: UNK
     Route: 065
     Dates: start: 20160615

REACTIONS (3)
  - Dehydration [Unknown]
  - Electrolyte imbalance [Unknown]
  - Diarrhoea [Recovered/Resolved]

NARRATIVE: CASE EVENT DATE: 20160527
